FAERS Safety Report 16611661 (Version 1)
Quarter: 2019Q3

REPORT INFORMATION
  Report Type: Spontaneous
  Country: US (occurrence: US)
  Receive Date: 20190722
  Receipt Date: 20190722
  Transmission Date: 20191004
  Serious: No
  Sender: FDA-Public Use
  Company Number: US-ALLERGAN-1919604US

PATIENT
  Age: 17 Year
  Sex: Female

DRUGS (1)
  1. TRIPTORELIN PAMOATE - BP [Suspect]
     Active Substance: TRIPTORELIN PAMOATE
     Indication: TRANS-SEXUALISM
     Dosage: 22.5 MG,EVERY 24 WEEKS
     Route: 030

REACTIONS (1)
  - Off label use [Unknown]
